FAERS Safety Report 6538728-X (Version None)
Quarter: 2010Q1

REPORT INFORMATION
  Report Type: 
  Country: None (occurrence: None)
  Receive Date: 20100114
  Receipt Date: 20100114
  Transmission Date: 20100710
  Serious: Yes (Hospitalization)
  Sender: FDA-Public Use
  Company Number: None

PATIENT
  Sex: Male

DRUGS (2)
  1. IXABEPILONE START DATE: 04/21/09 [Suspect]
     Dates: start: 20090421
  2. SUNITINIB START DATE 04/28/09 [Suspect]
     Dates: start: 20090428

REACTIONS (1)
  - INTESTINAL OBSTRUCTION [None]
